FAERS Safety Report 24631102 (Version 1)
Quarter: 2024Q4

REPORT INFORMATION
  Report Type: Spontaneous
  Country: US (occurrence: US)
  Receive Date: 20241118
  Receipt Date: 20241118
  Transmission Date: 20250114
  Serious: Yes (Hospitalization)
  Sender: SANOFI AVENTIS
  Company Number: US-SA-2024SA334004

PATIENT
  Sex: Male

DRUGS (4)
  1. PLAVIX [Suspect]
     Active Substance: CLOPIDOGREL BISULFATE
     Dosage: UNK
  2. GABAPENTIN [Concomitant]
     Active Substance: GABAPENTIN
     Dosage: 300 MG
     Route: 048
     Dates: start: 20221206
  3. ROSUVASTATIN [Concomitant]
     Active Substance: ROSUVASTATIN
     Dosage: 10 MG
     Route: 048
     Dates: start: 20240924
  4. TAFAMIDIS [Concomitant]
     Active Substance: TAFAMIDIS
     Dosage: 61 MG, QD
     Route: 048
     Dates: start: 20241105

REACTIONS (1)
  - Ischaemia [Unknown]
